APPROVED DRUG PRODUCT: VERSAPEN-K
Active Ingredient: HETACILLIN POTASSIUM
Strength: EQ 225MG AMPICIL
Dosage Form/Route: CAPSULE;ORAL
Application: A061396 | Product #001
Applicant: BRISTOL LABORATORIES INC DIV BRISTOL MYERS CO
Approved: Approved Prior to Jan 1, 1982 | RLD: No | RS: No | Type: DISCN